FAERS Safety Report 9391235 (Version 1)
Quarter: 2013Q3

REPORT INFORMATION
  Report Type: Spontaneous
  Country: US (occurrence: US)
  Receive Date: 20130709
  Receipt Date: 20130709
  Transmission Date: 20140515
  Serious: No
  Sender: FDA-Public Use
  Company Number: US-009507513-1307USA000761

PATIENT
  Sex: 0
  Weight: 64.1 kg

DRUGS (2)
  1. NEXPLANON [Suspect]
     Dosage: 1 DF, UNK
     Route: 059
     Dates: start: 20130628, end: 20130628
  2. NEXPLANON [Suspect]
     Dosage: 1 ROD EVERY THREE YEARS
     Route: 059
     Dates: start: 20130628

REACTIONS (2)
  - Device difficult to use [Recovered/Resolved]
  - No adverse event [Unknown]
